FAERS Safety Report 6032190-1 (Version None)
Quarter: 2009Q1

REPORT INFORMATION
  Report Type: 
  Country: None (occurrence: None)
  Receive Date: 20090108
  Receipt Date: 20081230
  Transmission Date: 20090719
  Serious: Yes (Other)
  Sender: FDA-Public Use
  Company Number: GR-ROXANE LABORATORIES, INC.-2008-RO-00503RO

PATIENT
  Age: 28 Year
  Sex: Male

DRUGS (2)
  1. ZALEPLON [Suspect]
     Indication: INSOMNIA
  2. ZALEPLON [Suspect]
     Route: 045

REACTIONS (7)
  - ANXIETY [None]
  - DRUG ABUSE [None]
  - ELEVATED MOOD [None]
  - EUPHORIC MOOD [None]
  - INCORRECT ROUTE OF DRUG ADMINISTRATION [None]
  - NERVOUSNESS [None]
  - WITHDRAWAL SYNDROME [None]
